FAERS Safety Report 19245870 (Version 3)
Quarter: 2021Q2

REPORT INFORMATION
  Report Type: Spontaneous
  Country: IT (occurrence: IT)
  Receive Date: 20210511
  Receipt Date: 20210527
  Transmission Date: 20210717
  Serious: Yes (Other)
  Sender: FDA-Public Use
  Company Number: IT-CELLTRION INC.-2021IT006250

PATIENT

DRUGS (7)
  1. EPOETIN ALFA [Concomitant]
     Active Substance: ERYTHROPOIETIN
     Indication: MYELODYSPLASTIC SYNDROME
     Dosage: UNK
     Dates: start: 2018
  2. IMATINIB. [Concomitant]
     Active Substance: IMATINIB MESYLATE
     Dosage: 600 MILLIGRAM, QD
  3. PONATINIB [Concomitant]
     Active Substance: PONATINIB
     Dosage: 15 MG, QD
  4. PREDNISONE. [Suspect]
     Active Substance: PREDNISONE
     Dosage: 1 MG/KG, QD
     Route: 065
     Dates: start: 2018
  5. RITUXIMAB (UNKNOWN) [Suspect]
     Active Substance: RITUXIMAB
     Indication: MYELODYSPLASTIC SYNDROME
     Dosage: 375 MG/M2 (PHARMACEUTICAL DOSE FORM:UNKNOWN)
     Route: 065
  6. RITUXIMAB (UNKNOWN) [Suspect]
     Active Substance: RITUXIMAB
     Indication: RETROPERITONEAL FIBROSIS
     Dosage: 375 MG/M2, 1X
     Route: 065
     Dates: start: 201810
  7. PREDNISONE. [Suspect]
     Active Substance: PREDNISONE
     Indication: RETROPERITONEAL FIBROSIS
     Dosage: TAPERING
     Route: 065
     Dates: start: 2018

REACTIONS (2)
  - Urinary tract infection [Unknown]
  - Off label use [Unknown]

NARRATIVE: CASE EVENT DATE: 2018
